APPROVED DRUG PRODUCT: AZELASTINE HYDROCHLORIDE
Active Ingredient: AZELASTINE HYDROCHLORIDE
Strength: 0.05%
Dosage Form/Route: SOLUTION/DROPS;OPHTHALMIC
Application: A078621 | Product #001 | TE Code: AT
Applicant: APOTEX INC
Approved: Aug 3, 2009 | RLD: No | RS: No | Type: RX